FAERS Safety Report 6131642-3 (Version None)
Quarter: 2009Q1

REPORT INFORMATION
  Report Type: 
  Country: None (occurrence: None)
  Receive Date: 20090325
  Receipt Date: 20081230
  Transmission Date: 20090719
  Serious: No
  Sender: FDA-Public Use
  Company Number: US-BRISTOL-MYERS SQUIBB COMPANY-14458095

PATIENT
  Age: 70 Year
  Sex: Male

DRUGS (1)
  1. ERBITUX [Suspect]

REACTIONS (2)
  - ABDOMINAL PAIN UPPER [None]
  - MUSCLE SPASMS [None]
